FAERS Safety Report 9573058 (Version 1)
Quarter: 2013Q4

REPORT INFORMATION
  Report Type: Spontaneous
  Country: US (occurrence: US)
  Receive Date: 20131001
  Receipt Date: 20131001
  Transmission Date: 20140711
  Serious: No
  Sender: FDA-Public Use
  Company Number: US-BIOGENIDEC-2013BI069639

PATIENT
  Age: 55 Year
  Sex: Female
  Weight: 56 kg

DRUGS (8)
  1. TECFIDERA [Suspect]
     Indication: MULTIPLE SCLEROSIS
     Route: 048
     Dates: start: 20130715
  2. LYRICA [Concomitant]
  3. FISH OIL [Concomitant]
  4. POTASSIUM [Concomitant]
  5. VITAMIN E [Concomitant]
  6. FLAX SEED OIL [Concomitant]
  7. LUNESTA [Concomitant]
  8. REMERON [Concomitant]

REACTIONS (6)
  - Flushing [Unknown]
  - Erythema [Unknown]
  - Swelling [Unknown]
  - Rash [Unknown]
  - Feeling hot [Unknown]
  - Pruritus [Recovered/Resolved]
